FAERS Safety Report 7262960-3 (Version None)
Quarter: 2011Q1

REPORT INFORMATION
  Report Type: 
  Country: None (occurrence: None)
  Receive Date: 20110130
  Receipt Date: 20101006
  Transmission Date: 20110831
  Serious: No
  Sender: FDA-Public Use
  Company Number: US-ABBOTT-10P-163-0676090-00

PATIENT
  Sex: Female
  Weight: 97.61 kg

DRUGS (10)
  1. HUMIRA [Suspect]
     Indication: ARTHRITIS
  2. WATER PILL [Concomitant]
     Indication: BLOOD PRESSURE
  3. UNKNOWN BP MEDICATION [Concomitant]
     Indication: BLOOD PRESSURE
  4. CALCIUM [Concomitant]
     Indication: PRODUCT USED FOR UNKNOWN INDICATION
  5. UNKNOWN BONE MED [Concomitant]
     Indication: MINERAL SUPPLEMENTATION
  6. HUMIRA [Suspect]
     Indication: PSORIASIS
  7. UNKNOWN PAIN MEDICATION [Concomitant]
     Indication: PAIN
     Dosage: PRN
  8. METHOTREXATE [Concomitant]
     Indication: PRODUCT USED FOR UNKNOWN INDICATION
  9. FOLIC ACID [Concomitant]
     Indication: PRODUCT USED FOR UNKNOWN INDICATION
  10. UNKNOWN CHOLESTEROL MEDICATION [Concomitant]
     Indication: BLOOD CHOLESTEROL

REACTIONS (3)
  - RASH [None]
  - DRUG INEFFECTIVE [None]
  - GAIT DISTURBANCE [None]
